FAERS Safety Report 9678205 (Version 1)
Quarter: 2013Q4

REPORT INFORMATION
  Report Type: Spontaneous
  Country: US (occurrence: None)
  Receive Date: 20131106
  Receipt Date: 20131106
  Transmission Date: 20140711
  Serious: Yes (Other)
  Sender: FDA-Public Use
  Company Number: UTC-039501

PATIENT
  Age: 40 Year
  Sex: Female
  Weight: 61.4 kg

DRUGS (3)
  1. REMODULIN ( 2.5 MILLIGRAM/MILLILITERS, INJECTION FOR INFUSION) ( TREPROSTINIL SODIUM) [Suspect]
     Indication: COR PULMONALE CHRONIC
     Dosage: 20.16 UG/KG ( 0.014 UG/KG, 1 IN 1 MIN) SUBCUTANEOUS
     Route: 058
     Dates: start: 20130906
  2. LETAIRIS ( AMBRISENTAN) ( TABLET) ( AMBRISENTAN) [Suspect]
     Indication: PULMONARY ARTERIAL HYPERTENSION
     Dosage: 10 MG ( 10 MG, 1 IN 1 D)
     Dates: start: 20120803
  3. ADCIRCA ( TADALAFIL) ( UNKNOWN) [Concomitant]

REACTIONS (1)
  - Infusion site haemorrhage [None]
